FAERS Safety Report 11433356 (Version 2)
Quarter: 2015Q3

REPORT INFORMATION
  Report Type: Spontaneous
  Country: US (occurrence: US)
  Receive Date: 20150830
  Receipt Date: 20150915
  Transmission Date: 20151125
  Serious: No
  Sender: FDA-Public Use
  Company Number: US-AMGEN-USASP2015085748

PATIENT
  Age: 35 Year
  Sex: Female

DRUGS (1)
  1. ENBREL [Suspect]
     Active Substance: ETANERCEPT
     Indication: RHEUMATOID ARTHRITIS
     Dosage: 50 MG, ONCE A WEEK
     Route: 065
     Dates: start: 20130331

REACTIONS (5)
  - Condition aggravated [Unknown]
  - Drug effect incomplete [Unknown]
  - Musculoskeletal pain [Unknown]
  - Pregnancy [Recovered/Resolved]
  - Arthralgia [Unknown]
